FAERS Safety Report 8524706-8 (Version None)
Quarter: 2012Q3

REPORT INFORMATION
  Report Type: 
  Country: None (occurrence: None)
  Receive Date: 20120720
  Receipt Date: 20120712
  Transmission Date: 20120928
  Serious: Yes (Hospitalization, Other)
  Sender: FDA-Public Use
  Company Number: US-009507513-1202USA00217

PATIENT

DRUGS (4)
  1. FOSAMAX [Suspect]
     Indication: OSTEOPOROSIS
  2. ACTONEL [Suspect]
     Indication: OSTEOPENIA
     Dosage: UNK
     Route: 048
     Dates: start: 20081218
  3. FOSAMAX [Suspect]
     Indication: OSTEOPENIA
     Dosage: UNK UNK, QW
     Route: 048
     Dates: start: 20010101, end: 20051213
  4. FOSAMAX PLUS D [Suspect]
     Indication: OSTEOPOROSIS
     Dosage: 2800 IU, QW
     Route: 048
     Dates: start: 20051214, end: 20071217

REACTIONS (21)
  - DIVERTICULUM [None]
  - OSTEOARTHRITIS [None]
  - URINARY TRACT INFECTION [None]
  - FOOT FRACTURE [None]
  - CHOLELITHIASIS [None]
  - OBSESSIVE-COMPULSIVE DISORDER [None]
  - TONSILLAR DISORDER [None]
  - APPENDIX DISORDER [None]
  - DRUG HYPERSENSITIVITY [None]
  - PNEUMONIA [None]
  - DEPRESSION [None]
  - FALL [None]
  - ARTHRITIS [None]
  - GALLBLADDER DISORDER [None]
  - GASTROOESOPHAGEAL REFLUX DISEASE [None]
  - IRRITABLE BOWEL SYNDROME [None]
  - FEMUR FRACTURE [None]
  - ANAEMIA [None]
  - DYSPEPSIA [None]
  - BREAST CYST [None]
  - BRONCHITIS [None]
